FAERS Safety Report 14568866 (Version 1)
Quarter: 2018Q1

REPORT INFORMATION
  Report Type: Spontaneous
  Country: GB (occurrence: GB)
  Receive Date: 20180223
  Receipt Date: 20180223
  Transmission Date: 20180509
  Serious: Yes (Death, Hospitalization, Other)
  Sender: FDA-Public Use
  Company Number: GB-MYLANLABS-2018M1012575

PATIENT
  Age: 85 Year
  Sex: Female

DRUGS (1)
  1. PREDNISOLONE. [Suspect]
     Active Substance: PREDNISOLONE
     Indication: TEMPORAL ARTERITIS
     Dosage: 15MG DAILY
     Route: 065

REACTIONS (3)
  - Pseudomonal sepsis [Fatal]
  - Psoas abscess [Fatal]
  - Ecthyma [Fatal]
